FAERS Safety Report 13463142 (Version 1)
Quarter: 2017Q2

REPORT INFORMATION
  Report Type: Spontaneous
  Country: CN (occurrence: CN)
  Receive Date: 20170420
  Receipt Date: 20170420
  Transmission Date: 20170830
  Serious: Yes (Other)
  Sender: FDA-Public Use
  Company Number: CN-009507513-1704CHN006798

PATIENT
  Age: 74 Year
  Sex: Male
  Weight: 65 kg

DRUGS (10)
  1. WARFARIN SODIUM. [Suspect]
     Active Substance: WARFARIN SODIUM
     Indication: COAGULOPATHY
     Dosage: 1.5 MG, QD
     Route: 048
     Dates: start: 20160314, end: 20170128
  2. IMIPENEM AND CILASTATIN [Suspect]
     Active Substance: CILASTATIN SODIUM\IMIPENEM
     Indication: UPPER RESPIRATORY TRACT INFECTION
     Dosage: 1 G, BID
     Route: 041
     Dates: start: 20170131, end: 20170203
  3. SODIUM CHLORIDE. [Suspect]
     Active Substance: SODIUM CHLORIDE
     Dosage: 100 ML, BID (INDICATION: SOLVENT)
     Route: 041
     Dates: start: 20170128, end: 20170130
  4. DIGOXIN. [Suspect]
     Active Substance: DIGOXIN
     Indication: ARTERIOSCLEROSIS CORONARY ARTERY
     Dosage: 0.125 MG, QD
     Route: 048
     Dates: start: 20160314, end: 20170203
  5. SPIRONOLACTONE. [Suspect]
     Active Substance: SPIRONOLACTONE
     Indication: HYPERTENSION
     Dosage: 20 MG, QD
     Route: 048
     Dates: start: 20160314, end: 20170203
  6. LEVOFLOXACIN LACTATE (+) SODIUM CHLORIDE [Suspect]
     Active Substance: LEVOFLOXACIN LACTATE
     Indication: UPPER RESPIRATORY TRACT INFECTION
     Dosage: 0.6 G, QD
     Route: 041
     Dates: start: 20170128, end: 20170203
  7. LOTENSIN HCT [Suspect]
     Active Substance: BENAZEPRIL HYDROCHLORIDE\HYDROCHLOROTHIAZIDE
     Indication: HYPERTENSION
     Dosage: 5 MG, QD
     Route: 048
     Dates: start: 20160314, end: 20170203
  8. VASOREL [Suspect]
     Active Substance: TRIMETAZIDINE DIHYDROCHLORIDE
     Indication: ARTERIOSCLEROSIS CORONARY ARTERY
     Dosage: 20 MG, TID
     Route: 048
     Dates: start: 20160314, end: 20170203
  9. SULPERAZONE [Suspect]
     Active Substance: CEFOPERAZONE SODIUM\SULBACTAM SODIUM
     Indication: UPPER RESPIRATORY TRACT INFECTION
     Dosage: 3 G, BID
     Route: 041
     Dates: start: 20170128, end: 20170130
  10. SODIUM CHLORIDE. [Suspect]
     Active Substance: SODIUM CHLORIDE
     Dosage: 100 ML, BID
     Route: 041
     Dates: start: 20170131, end: 20170203

REACTIONS (1)
  - Coagulopathy [Recovering/Resolving]

NARRATIVE: CASE EVENT DATE: 20170202
